FAERS Safety Report 13653506 (Version 1)
Quarter: 2017Q2

REPORT INFORMATION
  Report Type: Spontaneous
  Country: US (occurrence: US)
  Receive Date: 20170614
  Receipt Date: 20170614
  Transmission Date: 20170830
  Serious: No
  Sender: FDA-Public Use
  Company Number: US-ROCHE-1284730

PATIENT
  Age: 60 Year
  Sex: Female
  Weight: 122.03 kg

DRUGS (16)
  1. ATIVAN [Concomitant]
     Active Substance: LORAZEPAM
     Indication: PANIC ATTACK
     Dosage: START 6-7 YEARS
     Route: 065
  2. TYLENOL [Concomitant]
     Active Substance: ACETAMINOPHEN
     Indication: PAIN
     Route: 048
  3. ARIMIDEX [Concomitant]
     Active Substance: ANASTROZOLE
     Indication: BREAST CANCER
     Dosage: STOPPED BEFORE XELODA START
     Route: 065
  4. FASLODEX [Concomitant]
     Active Substance: FULVESTRANT
     Route: 065
  5. XELODA [Suspect]
     Active Substance: CAPECITABINE
     Dosage: 2 WEEKS ON, 1 WEEK OFF
     Route: 065
     Dates: start: 20130806, end: 20130815
  6. CYTOXAN [Concomitant]
     Active Substance: CYCLOPHOSPHAMIDE
     Indication: BREAST CANCER
     Dosage: PREVIOUS TREATMENT
     Route: 065
  7. XELODA [Suspect]
     Active Substance: CAPECITABINE
     Indication: BREAST CANCER METASTATIC
     Dosage: 2 WEEKS ON 1 WEEK OFF, PHASED IN CYCLE 1
     Route: 065
     Dates: start: 201305
  8. XELODA [Suspect]
     Active Substance: CAPECITABINE
     Route: 048
     Dates: start: 20130806, end: 20130816
  9. ATENOLOL. [Concomitant]
     Active Substance: ATENOLOL
     Indication: HYPERTENSION
     Dosage: START 6-7 YEARS AGO
     Route: 048
  10. XGEVA [Concomitant]
     Active Substance: DENOSUMAB
     Indication: BONE CANCER
     Dosage: START 2 WEEKS BEFORE XELOD DOSAGE CHANGE TO 8 A DA
     Route: 065
     Dates: start: 20130528, end: 20130726
  11. COMPAZINE [Concomitant]
     Active Substance: PROCHLORPERAZINE MALEATE
     Indication: NAUSEA
     Route: 065
  12. FLEXERIL [Concomitant]
     Active Substance: CYCLOBENZAPRINE HYDROCHLORIDE
     Route: 048
  13. AROMASIN [Concomitant]
     Active Substance: EXEMESTANE
     Indication: BREAST CANCER
     Route: 048
  14. VITAMIN B6 [Concomitant]
     Active Substance: PYRIDOXINE HYDROCHLORIDE
     Dosage: START WITH XELODA
     Route: 048
  15. ATIVAN [Concomitant]
     Active Substance: LORAZEPAM
     Indication: ANXIETY
     Dosage: EVERY 4-6 HOUR
     Route: 048
  16. ADRIAMYCIN [Concomitant]
     Active Substance: DOXORUBICIN HYDROCHLORIDE
     Indication: BREAST CANCER
     Dosage: PREVIOUS TREATMENT
     Route: 065

REACTIONS (18)
  - Urine odour abnormal [Unknown]
  - Abnormal faeces [Unknown]
  - Hypoaesthesia [Recovering/Resolving]
  - Neuropathy peripheral [Not Recovered/Not Resolved]
  - Throat irritation [Recovered/Resolved]
  - Menopause [Unknown]
  - Tumour marker increased [Unknown]
  - Rash [Recovering/Resolving]
  - Hypoaesthesia oral [Recovering/Resolving]
  - Tongue pruritus [Recovering/Resolving]
  - Throat irritation [Recovering/Resolving]
  - Hypoaesthesia oral [Not Recovered/Not Resolved]
  - Swollen tongue [Recovering/Resolving]
  - Tongue pruritus [Recovered/Resolved]
  - Skin odour abnormal [Unknown]
  - Depression [Unknown]
  - Hypoaesthesia [Not Recovered/Not Resolved]
  - Pharyngeal oedema [Recovering/Resolving]

NARRATIVE: CASE EVENT DATE: 20130808
